FAERS Safety Report 19996739 (Version 1)
Quarter: 2021Q4

REPORT INFORMATION
  Report Type: Report from Study
  Country: ES (occurrence: ES)
  Receive Date: 20211025
  Receipt Date: 20211025
  Transmission Date: 20220303
  Serious: Yes (Hospitalization, Other)
  Sender: FDA-Public Use
  Company Number: ES-TEVA-2021-ES-1968978

PATIENT
  Age: 26 Year
  Sex: Female

DRUGS (18)
  1. FLUDARABINE [Suspect]
     Active Substance: FLUDARABINE PHOSPHATE
     Indication: Acute myeloid leukaemia
     Route: 065
  2. FLUDARABINE [Suspect]
     Active Substance: FLUDARABINE PHOSPHATE
     Indication: Leukaemia recurrent
  3. CYTARABINE [Suspect]
     Active Substance: CYTARABINE
     Indication: Acute myeloid leukaemia
     Route: 065
  4. CYTARABINE [Suspect]
     Active Substance: CYTARABINE
     Indication: Leukaemia recurrent
     Dosage: HIGH DOSE
     Route: 065
  5. FILGRASTIM [Suspect]
     Active Substance: FILGRASTIM
     Indication: Acute myeloid leukaemia
     Route: 065
  6. FILGRASTIM [Suspect]
     Active Substance: FILGRASTIM
     Indication: Leukaemia recurrent
  7. IDARUBICIN [Suspect]
     Active Substance: IDARUBICIN
     Indication: Acute myeloid leukaemia
     Route: 065
  8. IDARUBICIN [Suspect]
     Active Substance: IDARUBICIN
     Indication: Leukaemia recurrent
  9. QUIZARTINIB [Suspect]
     Active Substance: QUIZARTINIB
     Indication: Acute myeloid leukaemia
     Route: 065
  10. QUIZARTINIB [Suspect]
     Active Substance: QUIZARTINIB
     Indication: Leukaemia recurrent
  11. AZACITIDINE [Suspect]
     Active Substance: AZACITIDINE
     Indication: Acute myeloid leukaemia
     Dosage: DAYS 1-7 OF EACH 28-DAY CYCLE
     Route: 065
     Dates: start: 202007
  12. AZACITIDINE [Suspect]
     Active Substance: AZACITIDINE
     Indication: Leukaemia recurrent
     Dosage: TWO CYCLES
     Route: 065
     Dates: start: 202011
  13. AZACITIDINE [Suspect]
     Active Substance: AZACITIDINE
     Dosage: THIRD CYCLE
     Route: 065
     Dates: start: 2021
  14. VENETOCLAX [Suspect]
     Active Substance: VENETOCLAX
     Indication: Acute myeloid leukaemia
     Dosage: 100 MILLIGRAM DAILY; UP TITRATED TO 400MG
     Route: 065
     Dates: start: 202010
  15. VENETOCLAX [Suspect]
     Active Substance: VENETOCLAX
     Indication: Leukaemia recurrent
     Dosage: TWO CYCLES
     Route: 065
     Dates: start: 202011
  16. VENETOCLAX [Suspect]
     Active Substance: VENETOCLAX
     Dosage: 50 MILLIGRAM DAILY; THIRD CYCLE: DOSE UP TITRATED TO 70MG
     Route: 065
     Dates: start: 2021
  17. VENETOCLAX [Suspect]
     Active Substance: VENETOCLAX
     Dosage: 100 MILLIGRAM DAILY; NEXT CYCLE
     Route: 065
     Dates: start: 2021
  18. POSACONAZOLE [Concomitant]
     Active Substance: POSACONAZOLE
     Indication: Antifungal prophylaxis
     Route: 065

REACTIONS (8)
  - Bronchopulmonary aspergillosis [Unknown]
  - Graft versus host disease in skin [Unknown]
  - Asthenia [Unknown]
  - Febrile neutropenia [Unknown]
  - Myelosuppression [Unknown]
  - Paronychia [Unknown]
  - Localised infection [Unknown]
  - Drug ineffective [Unknown]
